FAERS Safety Report 5668712-X (Version None)
Quarter: 2008Q1

REPORT INFORMATION
  Report Type: 
  Country: None (occurrence: None)
  Receive Date: 20080317
  Receipt Date: 20080305
  Transmission Date: 20080703
  Serious: Yes (Hospitalization)
  Sender: FDA-Public Use
  Company Number: GB-RANBAXY-2008RR-13491

PATIENT

DRUGS (5)
  1. CEFALEXIN CAPSULES BP 500MG [Suspect]
     Dosage: 500 MG, TID
     Route: 048
     Dates: start: 20070918
  2. CO-AMOXICLAV TABLETS 250/125 MG [Suspect]
     Dosage: 625 MG, TID
     Route: 048
     Dates: start: 20070918
  3. HERCEPTIN [Suspect]
     Dosage: 288 MG, 3/WEEK
     Route: 042
     Dates: start: 20070903
  4. CARBOPLATIN [Concomitant]
     Dosage: 750 MG, 1/WEEK
     Route: 042
     Dates: start: 20070813
  5. DOCETAXEL [Concomitant]
     Dosage: 130 MG, 1/WEEK
     Route: 042
     Dates: start: 20070813

REACTIONS (1)
  - CLOSTRIDIAL INFECTION [None]
